FAERS Safety Report 5280641-2 (Version None)
Quarter: 2007Q1

REPORT INFORMATION
  Report Type: 
  Country: None (occurrence: None)
  Receive Date: 20061221
  Receipt Date: 20061003
  Transmission Date: 20070707
  Serious: Yes (Death, Hospitalization, Other)
  Sender: FDA-Public Use
  Company Number: US-CVT-062020

PATIENT
  Age: 79 Year
  Sex: Male

DRUGS (13)
  1. RANEXA [Suspect]
     Indication: ANGINA PECTORIS
     Dosage: 500 MG, BID, ORAL
     Route: 048
     Dates: start: 20060901, end: 20060918
  2. TOPROL-XL [Concomitant]
  3. IMUDR (ISOSORBIDE MONONITRATE) [Concomitant]
  4. VICODIN [Concomitant]
  5. INSULIN, REGULAR (INSULIN) [Concomitant]
  6. PROTONIX [Concomitant]
  7. LASIX [Concomitant]
  8. LEXAPRO [Concomitant]
  9. NORVASC /00972401/ (AMLODIPINE) [Concomitant]
  10. SYTHROID (LEVOTHYROXINE SODIUM) [Concomitant]
  11. PREDNISONE /0044701/ (PREDNISONE) [Concomitant]
  12. FOSAMAX [Concomitant]
  13. ZOCOR [Concomitant]

REACTIONS (2)
  - CARDIAC ARREST [None]
  - POST PROCEDURAL HAEMATOMA [None]
